FAERS Safety Report 5994957-5 (Version None)
Quarter: 2008Q4

REPORT INFORMATION
  Report Type: 
  Country: None (occurrence: None)
  Receive Date: 20081212
  Receipt Date: 20080918
  Transmission Date: 20090506
  Serious: No
  Sender: FDA-Public Use
  Company Number: US-ABBOTT-08P-163-0477202-00

PATIENT
  Sex: Female

DRUGS (2)
  1. HUMIRA [Suspect]
     Indication: PSORIASIS
     Dosage: ONCE
     Route: 058
     Dates: start: 20080910, end: 20080910
  2. HUMIRA [Suspect]
     Route: 058
     Dates: start: 20080917

REACTIONS (3)
  - CELLULITIS [None]
  - PYREXIA [None]
  - RASH [None]
